FAERS Safety Report 6485521-2 (Version None)
Quarter: 2009Q4

REPORT INFORMATION
  Report Type: 
  Country: None (occurrence: None)
  Receive Date: 20091209
  Receipt Date: 20090715
  Transmission Date: 20100525
  Serious: No
  Sender: FDA-Public Use
  Company Number: US-AMGEN-KDL353651

PATIENT
  Sex: Female
  Weight: 133.9 kg

DRUGS (4)
  1. ENBREL [Suspect]
     Indication: RHEUMATOID ARTHRITIS
     Route: 058
     Dates: start: 20081222, end: 20090520
  2. CONCERTA [Concomitant]
     Dates: start: 20090107
  3. LEXAPRO [Concomitant]
     Dates: start: 20081006
  4. ARAVA [Concomitant]
     Dates: start: 20090203

REACTIONS (3)
  - INCREASED TENDENCY TO BRUISE [None]
  - INJECTION SITE HYPERTROPHY [None]
  - WEIGHT INCREASED [None]
